FAERS Safety Report 15389062 (Version 1)
Quarter: 2018Q3

REPORT INFORMATION
  Report Type: Spontaneous
  Country: US (occurrence: US)
  Receive Date: 20180917
  Receipt Date: 20180917
  Transmission Date: 20181010
  Serious: No
  Sender: FDA-Public Use
  Company Number: US-009507513-1808USA013205

PATIENT
  Sex: Female

DRUGS (3)
  1. JANUVIA [Suspect]
     Active Substance: SITAGLIPTIN PHOSPHATE
     Indication: TYPE 2 DIABETES MELLITUS
     Dosage: UNK
  2. AMOXICILLIN. [Concomitant]
     Active Substance: AMOXICILLIN
     Indication: ORAL INFECTION
     Dosage: UNK, (TAKING IT 2?3 TIMES A DAY POST SURGERY)
     Dates: start: 201808, end: 201808
  3. KEFLEX [Concomitant]
     Active Substance: CEPHALEXIN
     Indication: ORAL INFECTION
     Dosage: 1 DF, TID
     Route: 048
     Dates: start: 201807, end: 2018

REACTIONS (2)
  - Product colour issue [Unknown]
  - Blood glucose increased [Recovered/Resolved]

NARRATIVE: CASE EVENT DATE: 20180810
